FAERS Safety Report 13282282 (Version 3)
Quarter: 2018Q3

REPORT INFORMATION
  Report Type: Report from Study
  Country: AR (occurrence: AR)
  Receive Date: 20170301
  Receipt Date: 20180823
  Transmission Date: 20181010
  Serious: Yes (Hospitalization, Other)
  Sender: FDA-Public Use
  Company Number: PHHY2017AR031024

PATIENT
  Age: 70 Year
  Sex: Female

DRUGS (4)
  1. DIOVAN D [Suspect]
     Active Substance: HYDROCHLOROTHIAZIDE\VALSARTAN
     Indication: HYPERTENSION
     Dosage: 1 DF (HYDROCHLOROTHIAZIDE 12.5 MG, VALSARTAN 160 MG), QD
     Route: 065
     Dates: start: 20161008
  2. DIOVAN [Suspect]
     Active Substance: VALSARTAN
     Dosage: 80 MG, QD
     Route: 065
     Dates: start: 20161002, end: 20161008
  3. VOTRIENT [Suspect]
     Active Substance: PAZOPANIB HYDROCHLORIDE
     Indication: RENAL CANCER
     Dosage: 1 DF, BID
     Route: 065
     Dates: start: 201409
  4. DIOVAN [Suspect]
     Active Substance: VALSARTAN
     Indication: HYPERTENSION
     Dosage: 80 MG, QD
     Route: 065
     Dates: start: 201409

REACTIONS (8)
  - Device deployment issue [Unknown]
  - Deep vein thrombosis [Recovering/Resolving]
  - Gait disturbance [Recovering/Resolving]
  - Renal cancer metastatic [Recovering/Resolving]
  - Peripheral swelling [Not Recovered/Not Resolved]
  - Abdominal distension [Recovering/Resolving]
  - Accident [Recovering/Resolving]
  - Fluid retention [Recovering/Resolving]

NARRATIVE: CASE EVENT DATE: 20160928
